FAERS Safety Report 6388719-7 (Version None)
Quarter: 2009Q4

REPORT INFORMATION
  Report Type: 
  Country: None (occurrence: None)
  Receive Date: 20091005
  Receipt Date: 20090924
  Transmission Date: 20100525
  Serious: Yes (Death, Hospitalization, Other)
  Sender: FDA-Public Use
  Company Number: US-BAXTER-2009BH014719

PATIENT
  Sex: Female

DRUGS (4)
  1. HEPARIN SODIUM INJECTION [Suspect]
     Indication: DRUG USE FOR UNKNOWN INDICATION
     Route: 065
     Dates: start: 20080204
  2. HEPARIN SODIUM INJECTION [Suspect]
     Indication: AORTIC ANEURYSM
     Route: 065
     Dates: start: 20080204
  3. HEPARIN SODIUM INJECTION [Suspect]
     Route: 065
     Dates: start: 20080204
  4. HEPARIN SODIUM INJECTION [Suspect]
     Route: 065
     Dates: start: 20080204

REACTIONS (21)
  - ABDOMINAL PAIN [None]
  - ADRENAL HAEMORRHAGE [None]
  - CHEST PAIN [None]
  - CHILLS [None]
  - DEATH [None]
  - DYSPNOEA [None]
  - ECCHYMOSIS [None]
  - GENERAL PHYSICAL HEALTH DETERIORATION [None]
  - HEPARIN-INDUCED THROMBOCYTOPENIA [None]
  - HYPOTENSION [None]
  - MENTAL STATUS CHANGES [None]
  - MYOCARDIAL INFARCTION [None]
  - NAUSEA [None]
  - OEDEMA [None]
  - PLATELET COUNT DECREASED [None]
  - RENAL FAILURE ACUTE [None]
  - RESPIRATORY DISTRESS [None]
  - SEPSIS [None]
  - SEPTIC SHOCK [None]
  - THROMBOCYTOPENIA [None]
  - VOMITING [None]
